FAERS Safety Report 23860104 (Version 1)
Quarter: 2024Q2

REPORT INFORMATION
  Report Type: Spontaneous
  Country: US (occurrence: US)
  Receive Date: 20240515
  Receipt Date: 20240515
  Transmission Date: 20240715
  Serious: No
  Sender: FDA-Public Use
  Company Number: US-SA-SAC20240513000568

PATIENT
  Age: 8 Year
  Sex: Male
  Weight: 20.6 kg

DRUGS (1)
  1. DUPIXENT [Suspect]
     Active Substance: DUPILUMAB
     Indication: Eosinophilic oesophagitis
     Dosage: DOSE OR AMOUNT: 300MG FREQUENCY: EVERY 30 DAYS
     Route: 058

REACTIONS (1)
  - Incorrect dose administered [Unknown]
